FAERS Safety Report 8125161-2 (Version None)
Quarter: 2012Q1

REPORT INFORMATION
  Report Type: 
  Country: None (occurrence: None)
  Receive Date: 20120209
  Receipt Date: 20120207
  Transmission Date: 20120608
  Serious: No
  Sender: FDA-Public Use
  Company Number: US-TEVA-321489USA

PATIENT
  Sex: Female
  Weight: 65.83 kg

DRUGS (2)
  1. PLAN B ONE-STEP [Suspect]
     Indication: POST COITAL CONTRACEPTION
     Dosage: 1.5 MILLIGRAM;
     Route: 048
     Dates: start: 20120107, end: 20120107
  2. PLAN B ONE-STEP [Suspect]
     Dosage: 1.5 MILLIGRAM;
     Route: 048
     Dates: start: 20120114, end: 20120114

REACTIONS (9)
  - WEIGHT INCREASED [None]
  - FATIGUE [None]
  - PREGNANCY AFTER POST COITAL CONTRACEPTION [None]
  - MENSTRUATION DELAYED [None]
  - NAUSEA [None]
  - VAGINAL HAEMORRHAGE [None]
  - PELVIC PAIN [None]
  - DRUG INEFFECTIVE [None]
  - BREAST PAIN [None]
